FAERS Safety Report 13507065 (Version 3)
Quarter: 2017Q2

REPORT INFORMATION
  Report Type: Report from Study
  Country: FR (occurrence: FR)
  Receive Date: 20170503
  Receipt Date: 20170621
  Transmission Date: 20170830
  Serious: Yes (Hospitalization)
  Sender: FDA-Public Use
  Company Number: FR-ASTRAZENECA-2017SE20981

PATIENT
  Age: 77 Year
  Sex: Male
  Weight: 72 kg

DRUGS (5)
  1. INNOHEP [Concomitant]
     Active Substance: TINZAPARIN SODIUM
     Indication: INSOMNIA
     Route: 058
     Dates: start: 20160902
  2. AMLOR [Concomitant]
     Active Substance: AMLODIPINE BESYLATE
     Indication: HYPERTENSION
     Route: 048
     Dates: start: 2006
  3. MEDI4736 [Suspect]
     Active Substance: DURVALUMAB
     Indication: NEOPLASM MALIGNANT
     Route: 042
     Dates: start: 20160527
  4. ATARAX [Concomitant]
     Active Substance: HYDROXYZINE HYDROCHLORIDE
     Indication: RASH
     Route: 048
     Dates: start: 20161202
  5. ZOPICLONE [Concomitant]
     Active Substance: ZOPICLONE
     Indication: INSOMNIA
     Route: 048
     Dates: start: 201603

REACTIONS (1)
  - Polymyalgia rheumatica [Recovered/Resolved]

NARRATIVE: CASE EVENT DATE: 20170222
